FAERS Safety Report 15413897 (Version 1)
Quarter: 2020Q3

REPORT INFORMATION
  Report Type: Spontaneous
  Country: IT (occurrence: IT)
  Receive Date: 20180921
  Receipt Date: 20180921
  Transmission Date: 20201104
  Serious: Yes (Other)
  Sender: FDA-Public Use
  Company Number: IND-IT-009507513-1809ITA007347

PATIENT
  Age: 55 Year
  Sex: Female

DRUGS (2)
  1. ETORICOXIB. [Suspect]
     Active Substance: ETORICOXIB
     Indication: PAIN IN EXTREMITY
     Dosage: UNK
     Route: 048
     Dates: start: 20180908, end: 20180908
  2. ASPIRIN. [Concomitant]
     Active Substance: ASPIRIN
     Dosage: UNK
     Route: 048

REACTIONS (3)
  - Vomiting [Recovering/Resolving]
  - Abdominal pain upper [Recovering/Resolving]
  - Electroencephalogram abnormal [Recovering/Resolving]

NARRATIVE: CASE EVENT DATE: 20180908
